FAERS Safety Report 5749599-3 (Version None)
Quarter: 2008Q2

REPORT INFORMATION
  Report Type: 
  Country: None (occurrence: None)
  Receive Date: 20080521
  Receipt Date: 20080521
  Transmission Date: 20081010
  Serious: Yes (Death, Hospitalization)
  Sender: FDA-Public Use
  Company Number: None

PATIENT
  Sex: Male
  Weight: 74 kg

DRUGS (3)
  1. FLUOROURACIL [Suspect]
     Dosage: 13335 MG
     Dates: start: 20051212, end: 20051212
  2. LEUCOVORIN CALCIUM [Suspect]
     Dosage: 4335 MG
     Dates: end: 20051212
  3. ELOXATIN [Suspect]
     Dosage: 640 MG
     Dates: end: 20051212

REACTIONS (11)
  - ACUTE MYOCARDIAL INFARCTION [None]
  - ANAEMIA [None]
  - ELECTROCARDIOGRAM T WAVE ABNORMAL [None]
  - EPIDIDYMITIS [None]
  - FALL [None]
  - HYPERCHOLESTEROLAEMIA [None]
  - LOSS OF CONSCIOUSNESS [None]
  - MYOCARDIAL ISCHAEMIA [None]
  - PAIN [None]
  - UNRESPONSIVE TO STIMULI [None]
  - URINARY TRACT INFECTION [None]
